FAERS Safety Report 4551411-5 (Version None)
Quarter: 2005Q1

REPORT INFORMATION
  Report Type: 
  Country: None (occurrence: None)
  Receive Date: 20050103
  Receipt Date: 20041222
  Transmission Date: 20050727
  Serious: No
  Sender: FDA-Public Use
  Company Number: THYM-10362

PATIENT
  Age: 28 Year
  Sex: Male

DRUGS (5)
  1. THYMOGLOBULIN [Suspect]
     Indication: PANCREAS TRANSPLANT
     Dates: end: 20041106
  2. THYMOGLOBULIN [Suspect]
     Indication: RENAL TRANSPLANT
     Dates: end: 20041106
  3. TACROLIMUS [Concomitant]
  4. MYCOPHENOLATE MOFETIL [Concomitant]
  5. PREDNISONE [Concomitant]

REACTIONS (8)
  - ABASIA [None]
  - BLOOD GLUCOSE INCREASED [None]
  - COMPLICATIONS OF TRANSPLANT SURGERY [None]
  - GRAFT THROMBOSIS [None]
  - INSULIN C-PEPTIDE ABNORMAL [None]
  - OEDEMA PERIPHERAL [None]
  - RENAL TUBULAR NECROSIS [None]
  - SERUM SICKNESS [None]
